FAERS Safety Report 9541104 (Version 1)
Quarter: 2013Q3

REPORT INFORMATION
  Report Type: Spontaneous
  Country: US (occurrence: US)
  Receive Date: 20130923
  Receipt Date: 20130923
  Transmission Date: 20140515
  Serious: No
  Sender: FDA-Public Use
  Company Number: US-009507513-1309USA006414

PATIENT
  Sex: Male

DRUGS (4)
  1. DULERA [Suspect]
     Indication: ASTHMA
     Dosage: 200/5MCG - ^2 PUFFS TWICE A DAYS^
     Route: 055
     Dates: end: 2013
  2. TOPROL XL TABLETS [Concomitant]
  3. MEVACOR TABLET [Concomitant]
     Route: 048
  4. METFORMIN [Concomitant]

REACTIONS (2)
  - Dyspnoea [Not Recovered/Not Resolved]
  - Drug dose omission [Unknown]
